FAERS Safety Report 9818861 (Version 1)
Quarter: 2013Q4

REPORT INFORMATION
  Report Type: Spontaneous
  Country: US (occurrence: None)
  Receive Date: 20131223
  Receipt Date: 20131223
  Transmission Date: 20140711
  Serious: No
  Sender: FDA-Public Use
  Company Number: 219560

PATIENT
  Age: 79 Year
  Sex: Female

DRUGS (1)
  1. PICATO (0.015%) [Suspect]
     Indication: SKIN CANCER
     Dates: start: 20121102, end: 20121104

REACTIONS (5)
  - Application site erythema [None]
  - Application site dryness [None]
  - Application site pain [None]
  - Drug administered at inappropriate site [None]
  - Off label use [None]
